FAERS Safety Report 21017920 (Version 1)
Quarter: 2022Q2

REPORT INFORMATION
  Report Type: Spontaneous
  Country: IT (occurrence: IT)
  Receive Date: 20220628
  Receipt Date: 20220628
  Transmission Date: 20220721
  Serious: Yes (Hospitalization, Other)
  Sender: FDA-Public Use
  Company Number: IT-BAXTER-2022BAX013002

PATIENT
  Age: 70 Year
  Sex: Male

DRUGS (7)
  1. DOXORUBICIN [Suspect]
     Active Substance: DOXORUBICIN
     Indication: Dedifferentiated liposarcoma
     Dosage: 75 MG/M2, Q21
     Route: 065
     Dates: start: 2020, end: 2020
  2. DOXORUBICIN [Suspect]
     Active Substance: DOXORUBICIN
     Indication: Metastases to lung
  3. PIPERACILLIN AND TAZOBACTAM [Concomitant]
     Active Substance: PIPERACILLIN SODIUM\TAZOBACTAM SODIUM
     Indication: Antibiotic therapy
     Dosage: 1 {DF}, 3X A DAY
     Dates: start: 2020
  4. LEVOFLOXACIN [Concomitant]
     Active Substance: LEVOFLOXACIN
     Indication: Antibiotic therapy
     Dates: start: 2020, end: 2020
  5. ACETAMINOPHEN [Concomitant]
     Active Substance: ACETAMINOPHEN
     Indication: Back pain
     Dosage: USUALLY ONCE A DAY
     Dates: start: 2020
  6. CODEINE [Concomitant]
     Active Substance: CODEINE
     Indication: Back pain
     Dosage: USUALLY ONCE A DAY
  7. OXYGEN [Concomitant]
     Active Substance: OXYGEN
     Indication: Pneumothorax
     Dosage: 2 L/MIN
     Route: 065

REACTIONS (2)
  - Mediastinal disorder [Unknown]
  - Pneumothorax [Recovering/Resolving]

NARRATIVE: CASE EVENT DATE: 20200101
